FAERS Safety Report 20734048 (Version 1)
Quarter: 2022Q2

REPORT INFORMATION
  Report Type: Spontaneous
  Country: CA (occurrence: None)
  Receive Date: 20220421
  Receipt Date: 20220421
  Transmission Date: 20220721
  Serious: Yes (Other)
  Sender: FDA-Public Use
  Company Number: CA-ROCHE-3077757

PATIENT
  Age: 64 Year
  Sex: Female

DRUGS (1)
  1. XELODA [Suspect]
     Active Substance: CAPECITABINE
     Indication: Neoplasm malignant
     Route: 046

REACTIONS (5)
  - Asthenia [Unknown]
  - Decreased activity [Unknown]
  - Drug intolerance [Unknown]
  - Gait disturbance [Unknown]
  - Thrombosis [Unknown]
